FAERS Safety Report 12796037 (Version 1)
Quarter: 2016Q3

REPORT INFORMATION
  Report Type: Report from Study
  Country: US (occurrence: US)
  Receive Date: 20160929
  Receipt Date: 20160929
  Transmission Date: 20161109
  Serious: Yes (Hospitalization, Other)
  Sender: FDA-Public Use
  Company Number: US-ABBVIE-16K-163-1739229-00

PATIENT
  Sex: Female

DRUGS (2)
  1. PRILOSEC [Concomitant]
     Active Substance: OMEPRAZOLE MAGNESIUM
     Indication: PRODUCT USED FOR UNKNOWN INDICATION
  2. HUMIRA [Suspect]
     Active Substance: ADALIMUMAB
     Indication: PSORIATIC ARTHROPATHY
     Route: 058
     Dates: start: 2006

REACTIONS (10)
  - Pyrexia [Recovered/Resolved]
  - Migraine [Not Recovered/Not Resolved]
  - Hospitalisation [Unknown]
  - Infection parasitic [Unknown]
  - Malaise [Recovering/Resolving]
  - Vomiting [Recovered/Resolved]
  - Blood pressure inadequately controlled [Unknown]
  - Diarrhoea [Not Recovered/Not Resolved]
  - Pyrexia [Recovered/Resolved]
  - Lymphadenopathy [Unknown]

NARRATIVE: CASE EVENT DATE: 2009
